FAERS Safety Report 5674345-1 (Version None)
Quarter: 2008Q2

REPORT INFORMATION
  Report Type: 
  Country: None (occurrence: None)
  Receive Date: 20080229
  Receipt Date: 20070709
  Transmission Date: 20081010
  Serious: Yes (Hospitalization)
  Sender: FDA-Public Use
  Company Number: 243834

PATIENT
  Age: 12 Year
  Sex: Female

DRUGS (1)
  1. NUTROPIN [Suspect]
     Indication: TURNER'S SYNDROME
     Dosage: 1.8 MG,7/WEEK,SUBCUTANEOUS
     Route: 058
     Dates: start: 19970609

REACTIONS (1)
  - EPIPHYSIOLYSIS [None]
